FAERS Safety Report 7286133-3 (Version None)
Quarter: 2011Q1

REPORT INFORMATION
  Report Type: 
  Country: None (occurrence: None)
  Receive Date: 20110210
  Receipt Date: 20110203
  Transmission Date: 20110831
  Serious: Yes (Other)
  Sender: FDA-Public Use
  Company Number: US-CEPHALON-2010006374

PATIENT
  Sex: Male
  Weight: 102 kg

DRUGS (2)
  1. NUVIGIL [Suspect]
     Indication: SLEEP APNOEA SYNDROME
     Route: 048
     Dates: start: 20090101, end: 20101201
  2. NEXIUM [Concomitant]

REACTIONS (2)
  - MOUTH ULCERATION [None]
  - DRY MOUTH [None]
